FAERS Safety Report 8971728 (Version 2)
Quarter: 2013Q1

REPORT INFORMATION
  Report Type: Spontaneous
  Country: US (occurrence: US)
  Receive Date: 20121217
  Receipt Date: 20130118
  Transmission Date: 20140127
  Serious: Yes (Hospitalization)
  Sender: FDA-Public Use
  Company Number: US-ELI_LILLY_AND_COMPANY-US201212001991

PATIENT
  Sex: Female
  Weight: 119.73 kg

DRUGS (15)
  1. ADCIRCA [Suspect]
     Indication: COR PULMONALE CHRONIC
     Dosage: 40 MG, QD
     Route: 065
     Dates: start: 20101106
  2. PROZAC [Concomitant]
     Dosage: 90 MG, UNKNOWN
     Route: 065
  3. CARVEDILOL [Concomitant]
     Dosage: 12.5 MG, UNK
  4. REVATIO [Concomitant]
  5. NAPROXEN [Concomitant]
     Dosage: 500 MG, UNK
  6. KLOR-CON [Concomitant]
     Dosage: 10 MEQ, UNK
  7. FUROSEMIDE [Concomitant]
  8. BENICAR [Concomitant]
  9. ADVAIR [Concomitant]
  10. TRAMADOL [Concomitant]
     Dosage: 100 MG, UNK
  11. PREVACID [Concomitant]
     Dosage: 15 MG, UNK
  12. VENTOLIN                                /SCH/ [Concomitant]
     Dosage: 90 UG, UNK
     Route: 055
  13. ASA [Concomitant]
     Dosage: 325 UNK, UNK
  14. BENADRYL                           /00000402/ [Concomitant]
     Dosage: 25 UNK, UNK
  15. ETHEOPHYL [Concomitant]

REACTIONS (2)
  - Pneumonia [Unknown]
  - Acute respiratory failure [Recovered/Resolved]
